FAERS Safety Report 4955280-0 (Version None)
Quarter: 2006Q1

REPORT INFORMATION
  Report Type: 
  Country: None (occurrence: None)
  Receive Date: 20060328
  Receipt Date: 20060203
  Transmission Date: 20060701
  Serious: Yes (Other)
  Sender: FDA-Public Use
  Company Number: US-AMGEN-STX167556

PATIENT
  Sex: Female

DRUGS (2)
  1. ENBREL [Suspect]
     Indication: PSORIASIS
     Route: 058
     Dates: start: 20040714, end: 20040922
  2. ALEVE [Concomitant]
     Dates: start: 20041004

REACTIONS (6)
  - CEREBRAL ISCHAEMIA [None]
  - DEMYELINATION [None]
  - FACIAL PALSY [None]
  - HERPES ZOSTER [None]
  - MICROANGIOPATHY [None]
  - VASCULITIS [None]
